FAERS Safety Report 5466051-3 (Version None)
Quarter: 2007Q3

REPORT INFORMATION
  Report Type: 
  Country: None (occurrence: None)
  Receive Date: 20070924
  Receipt Date: 20070913
  Transmission Date: 20080115
  Serious: Yes (Other)
  Sender: FDA-Public Use
  Company Number: GB-GILEAD-2007-0013366

PATIENT

DRUGS (2)
  1. VIREAD [Suspect]
     Indication: HIV INFECTION
  2. VIREAD [Suspect]
     Indication: HEPATITIS B

REACTIONS (1)
  - OSTEOPOROSIS [None]
